FAERS Safety Report 5721775-5 (Version None)
Quarter: 2008Q2

REPORT INFORMATION
  Report Type: 
  Country: None (occurrence: None)
  Receive Date: 20080429
  Receipt Date: 20080416
  Transmission Date: 20081010
  Serious: Yes (Hospitalization, Other)
  Sender: FDA-Public Use
  Company Number: JP-ROCHE-553801

PATIENT
  Sex: Male
  Weight: 65 kg

DRUGS (8)
  1. PEGASYS [Suspect]
     Route: 058
     Dates: start: 20070605, end: 20070612
  2. PEGASYS [Suspect]
     Route: 058
     Dates: start: 20070619, end: 20070619
  3. PEGASYS [Suspect]
     Route: 058
     Dates: start: 20070626, end: 20071023
  4. PEGASYS [Suspect]
     Route: 058
     Dates: start: 20071030, end: 20071030
  5. PEGASYS [Suspect]
     Route: 058
     Dates: start: 20071106, end: 20080129
  6. PEGASYS [Suspect]
     Route: 058
     Dates: start: 20080205, end: 20080219
  7. PEGASYS [Suspect]
     Route: 058
     Dates: start: 20080226, end: 20080226
  8. COPEGUS [Suspect]
     Route: 048
     Dates: start: 20070605, end: 20080228

REACTIONS (7)
  - AORTIC VALVE INCOMPETENCE [None]
  - CEREBRAL INFARCTION [None]
  - DUODENAL ULCER [None]
  - ENDOCARDITIS [None]
  - PYELONEPHRITIS ACUTE [None]
  - SEPSIS [None]
  - TRANSIENT ISCHAEMIC ATTACK [None]
